FAERS Safety Report 8140369-8 (Version None)
Quarter: 2012Q1

REPORT INFORMATION
  Report Type: 
  Country: None (occurrence: None)
  Receive Date: 20120216
  Receipt Date: 20120213
  Transmission Date: 20120608
  Serious: Yes (Death)
  Sender: FDA-Public Use
  Company Number: US-PFIZER INC-2012015298

PATIENT
  Sex: Male

DRUGS (2)
  1. SUTENT [Suspect]
     Indication: THYROID CANCER METASTATIC
     Dosage: 12.5 MG, 1X/DAY
     Route: 048
     Dates: start: 20111101
  2. ENOXAPARIN [Concomitant]
     Dosage: 100 MG/ 1 ML SYR
     Dates: start: 20111031

REACTIONS (2)
  - THYROID CANCER METASTATIC [None]
  - DISEASE PROGRESSION [None]
